FAERS Safety Report 7912520-3 (Version None)
Quarter: 2011Q4

REPORT INFORMATION
  Report Type: 
  Country: None (occurrence: None)
  Receive Date: 20111114
  Receipt Date: 20111109
  Transmission Date: 20120403
  Serious: No
  Sender: FDA-Public Use
  Company Number: US-PFIZER INC-2011274640

PATIENT

DRUGS (7)
  1. LEVOTHYROXINE [Concomitant]
     Dosage: 50 UG, DAILY
  2. IBUPROFEN (ADVIL) [Suspect]
     Indication: HEADACHE
  3. IBUPROFEN (ADVIL) [Suspect]
     Indication: BACK PAIN
     Dosage: 400 MG, UNK
  4. OMEPRAZOLE [Concomitant]
     Dosage: 20 MG, 2X/DAY
  5. VITAMIN D [Concomitant]
     Dosage: UNK, DAILY
  6. CENTRUM [Concomitant]
     Dosage: UNK, DAILY
  7. CALCIUM CARBONATE [Concomitant]
     Dosage: UNK, DAILY

REACTIONS (10)
  - DRUG INTERACTION [None]
  - RASH MACULAR [None]
  - GLOSSODYNIA [None]
  - ABDOMINAL PAIN UPPER [None]
  - OROPHARYNGEAL PAIN [None]
  - MALAISE [None]
  - ERYTHEMA [None]
  - ORAL PAIN [None]
  - HEADACHE [None]
  - SWELLING [None]
